FAERS Safety Report 25689361 (Version 1)
Quarter: 2025Q3

REPORT INFORMATION
  Report Type: Spontaneous
  Country: EU (occurrence: EU)
  Receive Date: 20250818
  Receipt Date: 20250818
  Transmission Date: 20251021
  Serious: Yes (Other)
  Sender: MYLAN
  Company Number: EU-MYLANLABS-2025M1068452

PATIENT
  Age: 63 Year
  Sex: Female

DRUGS (8)
  1. PREDNISONE [Suspect]
     Active Substance: PREDNISONE
     Indication: Rheumatoid arthritis
  2. PREDNISONE [Suspect]
     Active Substance: PREDNISONE
     Route: 065
  3. PREDNISONE [Suspect]
     Active Substance: PREDNISONE
     Route: 065
  4. PREDNISONE [Suspect]
     Active Substance: PREDNISONE
  5. ETANERCEPT [Suspect]
     Active Substance: ETANERCEPT
     Indication: Rheumatoid arthritis
     Dosage: UNK, QW
  6. ETANERCEPT [Suspect]
     Active Substance: ETANERCEPT
     Dosage: UNK, QW
     Route: 065
  7. ETANERCEPT [Suspect]
     Active Substance: ETANERCEPT
     Dosage: UNK, QW
     Route: 065
  8. ETANERCEPT [Suspect]
     Active Substance: ETANERCEPT
     Dosage: UNK, QW

REACTIONS (3)
  - Pneumonia cytomegaloviral [Recovered/Resolved]
  - Pneumothorax [Recovered/Resolved]
  - Respiratory failure [Recovered/Resolved]
